FAERS Safety Report 11216186 (Version 1)
Quarter: 2015Q2

REPORT INFORMATION
  Report Type: Spontaneous
  Country: US (occurrence: None)
  Receive Date: 20150623
  Receipt Date: 20150623
  Transmission Date: 20150821
  Serious: Yes (Other)
  Sender: FDA-Public Use
  Company Number: None

PATIENT
  Age: 49 Year
  Sex: Female
  Weight: 80.29 kg

DRUGS (6)
  1. ROPRINIROLE [Concomitant]
  2. ALLEGRA [Concomitant]
     Active Substance: FEXOFENADINE HYDROCHLORIDE
  3. BRILLINEX [Concomitant]
  4. BIOTIN [Concomitant]
     Active Substance: BIOTIN
  5. ZYRTEC [Concomitant]
     Active Substance: CETIRIZINE HYDROCHLORIDE
  6. SCOPALAMINE [Suspect]
     Active Substance: SCOPOLAMINE
     Indication: MOTION SICKNESS
     Dosage: CHANGE Q72H, APPLIED TO A SURFACE, USUALLY THE SKIN
     Dates: start: 20150531, end: 20150618

REACTIONS (3)
  - Dizziness [None]
  - Malaise [None]
  - Vomiting [None]

NARRATIVE: CASE EVENT DATE: 20150619
